FAERS Safety Report 8287021-6 (Version None)
Quarter: 2012Q2

REPORT INFORMATION
  Report Type: 
  Country: None (occurrence: None)
  Receive Date: 20120416
  Receipt Date: 20120402
  Transmission Date: 20120825
  Serious: Yes (Life-Threatening)
  Sender: FDA-Public Use
  Company Number: JP-ROCHE-1038492

PATIENT
  Sex: Female

DRUGS (19)
  1. RITUXIMAB [Suspect]
     Dates: start: 20070511
  2. RITUXIMAB [Suspect]
     Dates: start: 20070405
  3. RITUXIMAB [Suspect]
     Dates: start: 20070607
  4. CYCLOPHOSPHAMIDE [Suspect]
     Indication: LYMPHOMA
     Dates: start: 20070117, end: 20081220
  5. RITUXIMAB [Suspect]
     Indication: DIFFUSE LARGE B-CELL LYMPHOMA
     Route: 042
     Dates: start: 20070116
  6. RITUXIMAB [Suspect]
     Dates: start: 20081122
  7. VINCRISTINE SULFATE [Suspect]
     Indication: DIFFUSE LARGE B-CELL LYMPHOMA
     Dates: start: 20070117, end: 20081220
  8. RITUXIMAB [Suspect]
     Dates: start: 20081024
  9. RITUXIMAB [Suspect]
     Dates: start: 20081220
  10. PREDNISOLONE [Suspect]
     Indication: LYMPHOMA
     Dates: start: 20081024, end: 20090316
  11. CYCLOPHOSPHAMIDE [Suspect]
     Indication: DIFFUSE LARGE B-CELL LYMPHOMA
  12. PROCARBAZINE HYDROCHLORIDE [Suspect]
     Indication: LYMPHOMA
     Dates: start: 20081024, end: 20090316
  13. RITUXIMAB [Suspect]
     Dates: start: 20070206
  14. RITUXIMAB [Suspect]
     Dates: start: 20070308
  15. PIRARUBICIN [Suspect]
     Indication: DIFFUSE LARGE B-CELL LYMPHOMA
     Dates: start: 20081024, end: 20081224
  16. DEPAS [Concomitant]
     Indication: INSOMNIA
     Route: 048
     Dates: start: 20070223
  17. DOXORUBICIN HYDROCHLORIDE [Suspect]
     Indication: DIFFUSE LARGE B-CELL LYMPHOMA
     Dates: start: 20070117, end: 20070609
  18. ETOPOSIDE [Suspect]
     Indication: LYMPHOMA
     Dates: start: 20081024, end: 20090316
  19. PREDNISOLONE [Suspect]
     Indication: DIFFUSE LARGE B-CELL LYMPHOMA
     Dates: start: 20070117, end: 20081224

REACTIONS (1)
  - PANCREATIC CARCINOMA [None]
